FAERS Safety Report 10278330 (Version 4)
Quarter: 2014Q4

REPORT INFORMATION
  Report Type: Report from Study
  Country: GB (occurrence: GB)
  Receive Date: 20140704
  Receipt Date: 20141014
  Transmission Date: 20150528
  Serious: Yes (Hospitalization, Other)
  Sender: FDA-Public Use
  Company Number: GB-ALEXION PHARMACEUTICALS INC.-A201300252

PATIENT

DRUGS (3)
  1. SOLIRIS [Suspect]
     Active Substance: ECULIZUMAB
     Dosage: 1800 MG, Q2W
     Route: 042
     Dates: start: 201404
  2. SOLIRIS [Suspect]
     Active Substance: ECULIZUMAB
     Indication: PAROXYSMAL NOCTURNAL HAEMOGLOBINURIA
     Dosage: 1500 MG, Q2W
     Route: 042
     Dates: start: 200811
  3. SOLIRIS [Suspect]
     Active Substance: ECULIZUMAB
     Dosage: 1800 MG, Q2W
     Route: 042
     Dates: start: 201404

REACTIONS (7)
  - Malaise [Recovered/Resolved]
  - Jaundice [Recovered/Resolved]
  - Full blood count decreased [Recovered/Resolved]
  - Unevaluable event [Recovering/Resolving]
  - Pyrexia [Recovered/Resolved]
  - Viral infection [Recovered/Resolved]
  - Incorrect dose administered [Unknown]

NARRATIVE: CASE EVENT DATE: 20130208
